FAERS Safety Report 9556153 (Version 1)
Quarter: 2013Q3

REPORT INFORMATION
  Report Type: Spontaneous
  Country: US (occurrence: US)
  Receive Date: 20130926
  Receipt Date: 20130926
  Transmission Date: 20140515
  Serious: Yes (Other)
  Sender: FDA-Public Use
  Company Number: US-SANOFI-AVENTIS-2013SA094225

PATIENT
  Age: 55 Year
  Sex: Female

DRUGS (1)
  1. AMBIEN [Suspect]
     Indication: PRODUCT USED FOR UNKNOWN INDICATION
     Dosage: TAKEN FROM : 7 YEARS AGO
     Route: 048

REACTIONS (8)
  - Hydrothorax [Unknown]
  - Cough [Recovered/Resolved]
  - Suicidal ideation [Unknown]
  - Tachycardia [Unknown]
  - Urinary incontinence [Unknown]
  - Cystitis interstitial [Unknown]
  - Overdose [Unknown]
  - Urethral pain [Unknown]
